FAERS Safety Report 7704952 (Version 7)
Quarter: 2014Q1

REPORT INFORMATION
  Report Type: Report from Study
  Country: JP (occurrence: JP)
  Receive Date: 20101213
  Receipt Date: 20140311
  Transmission Date: 20141002
  Serious: Yes (Hospitalization, Other)
  Sender: FDA-Public Use
  Company Number: JP-JNJFOC-20101203289

PATIENT
  Age: 42 Year
  Sex: Female
  Weight: 64 kg

DRUGS (9)
  1. REMICADE [Suspect]
     Indication: ANKYLOSING SPONDYLITIS
     Route: 042
     Dates: start: 20100715
  2. REMICADE [Suspect]
     Indication: ANKYLOSING SPONDYLITIS
     Route: 042
     Dates: start: 20100729
  3. REMICADE [Suspect]
     Indication: ANKYLOSING SPONDYLITIS
     Route: 042
     Dates: start: 20101029
  4. REMICADE [Suspect]
     Indication: ANKYLOSING SPONDYLITIS
     Route: 042
     Dates: start: 20100830
  5. METHOTREXATE [Suspect]
     Indication: ANKYLOSING SPONDYLITIS
     Route: 065
  6. PREDNISOLONE [Suspect]
     Indication: ANKYLOSING SPONDYLITIS
     Route: 065
  7. PREDNISOLONE [Suspect]
     Indication: ANKYLOSING SPONDYLITIS
     Route: 065
  8. METHOTREXATE [Concomitant]
     Indication: ANKYLOSING SPONDYLITIS
     Route: 048
     Dates: start: 20100115, end: 20100715
  9. ISCOTIN [Concomitant]
     Indication: ANTIBIOTIC PROPHYLAXIS
     Route: 065
     Dates: start: 20100624, end: 20100729

REACTIONS (3)
  - Disseminated tuberculosis [Recovered/Resolved]
  - Laryngospasm [Unknown]
  - Palpitations [Recovered/Resolved]
